FAERS Safety Report 13461065 (Version 1)
Quarter: 2017Q2

REPORT INFORMATION
  Report Type: Spontaneous
  Country: US (occurrence: US)
  Receive Date: 20170420
  Receipt Date: 20170420
  Transmission Date: 20170830
  Serious: No
  Sender: FDA-Public Use
  Company Number: US-TEVA-752801USA

PATIENT
  Sex: Female
  Weight: 65.83 kg

DRUGS (1)
  1. COPAXONE [Suspect]
     Active Substance: GLATIRAMER ACETATE
     Indication: MULTIPLE SCLEROSIS
     Dosage: UNKNOWN FORM STRENGTH

REACTIONS (6)
  - Erythema [Unknown]
  - Swelling [Unknown]
  - Skin irritation [Unknown]
  - Local reaction [Unknown]
  - Nausea [Unknown]
  - Abdominal discomfort [Unknown]
